FAERS Safety Report 8023979-8 (Version None)
Quarter: 2012Q1

REPORT INFORMATION
  Report Type: 
  Country: None (occurrence: None)
  Receive Date: 20120105
  Receipt Date: 20111228
  Transmission Date: 20120608
  Serious: No
  Sender: FDA-Public Use
  Company Number: US-B.I. PHARMACEUTICALS,INC./RIDGEFIELD-2012-BP-00123BP

PATIENT
  Sex: Female

DRUGS (6)
  1. VITAMIN B-12 [Concomitant]
     Indication: SUPPLEMENTATION THERAPY
     Route: 048
  2. VITAMIN D [Concomitant]
     Indication: ARTHRITIS
     Route: 048
  3. ZOCOR [Concomitant]
     Indication: BLOOD CHOLESTEROL
     Route: 048
  4. VITAMIN C [Concomitant]
     Indication: SUPPLEMENTATION THERAPY
     Route: 048
  5. TRADJENTA [Suspect]
     Indication: TYPE 2 DIABETES MELLITUS
     Dosage: 5 MG
     Route: 048
     Dates: start: 20111223
  6. PROTONIX [Concomitant]
     Indication: OESOPHAGEAL IRRITATION
     Route: 048

REACTIONS (1)
  - OESOPHAGEAL IRRITATION [None]
